FAERS Safety Report 6711927-X (Version None)
Quarter: 2010Q2

REPORT INFORMATION
  Report Type: 
  Country: None (occurrence: None)
  Receive Date: 20100505
  Receipt Date: 20090727
  Transmission Date: 20101027
  Serious: No
  Sender: FDA-Public Use
  Company Number: US-TYCO HEALTHCARE/MALLINCKRODT-T200901427

PATIENT
  Sex: Male
  Weight: 97.506 kg

DRUGS (4)
  1. METHADONE HCL [Suspect]
     Indication: BACK PAIN
     Dosage: 10 TABLETS, TID
     Route: 048
     Dates: start: 20030101
  2. LIPITOR [Concomitant]
     Indication: BLOOD CHOLESTEROL INCREASED
     Dosage: 10 MG, QD
     Route: 048
  3. DIAZEPAM [Concomitant]
     Indication: HYPERTENSION
     Dosage: 10 MG, 2-3 DAILY
     Route: 048
  4. VARIOUS SUPPLEMENTS (NOS) [Concomitant]
     Indication: PROPHYLAXIS
     Dosage: UNK
     Route: 048

REACTIONS (2)
  - DRUG EFFECT DECREASED [None]
  - PRODUCT TASTE ABNORMAL [None]
